FAERS Safety Report 25909027 (Version 1)
Quarter: 2025Q4

REPORT INFORMATION
  Report Type: Spontaneous
  Country: US (occurrence: US)
  Receive Date: 20251011
  Receipt Date: 20251011
  Transmission Date: 20260117
  Serious: No
  Sender: Kenvue
  Company Number: US-KENVUE-20250902775

PATIENT
  Sex: Female

DRUGS (1)
  1. VISINE ALLERGY EYE RELIEF MULTI-ACTION [Suspect]
     Active Substance: NAPHAZOLINE HYDROCHLORIDE\PHENIRAMINE MALEATE
     Indication: Product used for unknown indication
     Dosage: TWO DROPS IN EACH EYE
     Route: 047

REACTIONS (4)
  - Eye pain [Unknown]
  - Eye irritation [Unknown]
  - Lacrimation increased [Unknown]
  - Ocular discomfort [Unknown]
